FAERS Safety Report 6157655-3 (Version None)
Quarter: 2009Q2

REPORT INFORMATION
  Report Type: 
  Country: None (occurrence: None)
  Receive Date: 20090415
  Receipt Date: 20090415
  Transmission Date: 20091009
  Serious: No
  Sender: FDA-Public Use
  Company Number: None

PATIENT

DRUGS (2)
  1. METFORMIN HCL [Suspect]
     Dosage: 500 MG QD PO
     Route: 048
  2. METFORMIN HCL [Suspect]
     Dosage: 500 MG PO
     Route: 048

REACTIONS (1)
  - INTERCEPTED DRUG DISPENSING ERROR [None]
